FAERS Safety Report 7764763-X (Version None)
Quarter: 2011Q3

REPORT INFORMATION
  Report Type: 
  Country: None (occurrence: None)
  Receive Date: 20110921
  Receipt Date: 20110921
  Transmission Date: 20111222
  Serious: Yes (Hospitalization)
  Sender: FDA-Public Use
  Company Number: None

PATIENT
  Sex: Female

DRUGS (1)
  1. RITUXAN [Suspect]
     Indication: RHEUMATOID ARTHRITIS

REACTIONS (5)
  - CEREBROVASCULAR ACCIDENT [None]
  - GENITAL ULCERATION [None]
  - BACK PAIN [None]
  - PYREXIA [None]
  - STOMATITIS [None]
